FAERS Safety Report 5755425-9 (Version None)
Quarter: 2008Q2

REPORT INFORMATION
  Report Type: 
  Country: None (occurrence: None)
  Receive Date: 20080529
  Receipt Date: 20080529
  Transmission Date: 20081010
  Serious: Yes (Hospitalization, Other)
  Sender: FDA-Public Use
  Company Number: None

PATIENT
  Age: 57 Year
  Sex: Male
  Weight: 89.3586 kg

DRUGS (6)
  1. LISINOPRIL [Suspect]
     Indication: HYPERTENSION
     Dosage: 3 TABLETS DAILY PO
     Route: 048
     Dates: start: 20080425, end: 20080512
  2. CVS SPECTRAVITE [Concomitant]
  3. SPIRONOLACTONE [Concomitant]
  4. ISOSORBIDE DINITRATE [Concomitant]
  5. FUROSEMIDE [Concomitant]
  6. HYDRALAZINE HCL [Concomitant]

REACTIONS (3)
  - PRURITUS [None]
  - RASH [None]
  - SWOLLEN TONGUE [None]
